FAERS Safety Report 16388356 (Version 1)
Quarter: 2019Q2

REPORT INFORMATION
  Report Type: Report from Study
  Country: FR (occurrence: FR)
  Receive Date: 20190604
  Receipt Date: 20190604
  Transmission Date: 20190711
  Serious: Yes (Other)
  Sender: FDA-Public Use
  Company Number: FR-PFIZER INC-2019228939

PATIENT
  Age: 76 Year
  Sex: Male
  Weight: 75 kg

DRUGS (34)
  1. ADOPORT [Suspect]
     Active Substance: TACROLIMUS
     Dosage: 11 MG, UNK
     Route: 048
     Dates: start: 20190322, end: 20190324
  2. ADOPORT [Suspect]
     Active Substance: TACROLIMUS
     Dosage: 7 MG, UNK
     Route: 048
     Dates: start: 20190321
  3. ADOPORT [Suspect]
     Active Substance: TACROLIMUS
     Dosage: 9 MG, UNK
     Route: 048
     Dates: start: 20190402, end: 20190406
  4. ADOPORT [Suspect]
     Active Substance: TACROLIMUS
     Dosage: 4 MG, UNK
     Route: 048
     Dates: start: 20190409, end: 20190425
  5. PHLOROGLUCINOL [Concomitant]
     Active Substance: PHLOROGLUCINOL
     Dosage: UNK
     Route: 065
     Dates: start: 20190321, end: 20190326
  6. LANTUS [Concomitant]
     Active Substance: INSULIN GLARGINE
     Dosage: UNK
     Route: 065
     Dates: start: 20190326
  7. OXYBUTYNINE HCL [Concomitant]
     Active Substance: OXYBUTYNIN CHLORIDE
     Dosage: UNK
     Route: 065
     Dates: start: 20190321, end: 20190330
  8. SOLU-MEDROL [Suspect]
     Active Substance: METHYLPREDNISOLONE SODIUM SUCCINATE
     Dosage: 500 MG, UNK
     Route: 065
     Dates: start: 20190321, end: 20190321
  9. ADOPORT [Suspect]
     Active Substance: TACROLIMUS
     Dosage: 2 MG, UNK
     Route: 048
     Dates: start: 20190504
  10. ADOPORT [Suspect]
     Active Substance: TACROLIMUS
     Dosage: 9 MG, UNK
     Route: 048
     Dates: start: 20190330, end: 20190401
  11. TRAMADOL. [Concomitant]
     Active Substance: TRAMADOL
     Dosage: UNK
     Route: 065
     Dates: start: 20190321, end: 20190321
  12. PRAVASTATINE [PRAVASTATIN SODIUM] [Concomitant]
     Dosage: UNK
     Route: 065
     Dates: start: 20190322, end: 20190408
  13. BISOPROLOL [Concomitant]
     Active Substance: BISOPROLOL
     Dosage: UNK
     Route: 065
     Dates: start: 20190322
  14. PARACETAMOL [Concomitant]
     Active Substance: ACETAMINOPHEN
     Dosage: UNK
     Route: 065
     Dates: start: 20190321, end: 20190402
  15. ADOPORT [Suspect]
     Active Substance: TACROLIMUS
     Dosage: 5 MG, UNK
     Route: 048
     Dates: start: 20190321, end: 20190322
  16. ARANESP [Concomitant]
     Active Substance: DARBEPOETIN ALFA
     Dosage: UNK
     Route: 065
     Dates: start: 20190322
  17. ADOPORT [Suspect]
     Active Substance: TACROLIMUS
     Dosage: 11 MG, UNK
     Route: 048
     Dates: start: 20190321
  18. ADOPORT [Suspect]
     Active Substance: TACROLIMUS
     Dosage: 10 MG, UNK
     Route: 048
     Dates: start: 20190321
  19. ADOPORT [Suspect]
     Active Substance: TACROLIMUS
     Dosage: 10 MG, UNK
     Route: 048
     Dates: start: 20190324, end: 20190327
  20. CALCIPARINE [Concomitant]
     Active Substance: HEPARIN CALCIUM
     Dosage: UNK
     Route: 065
     Dates: start: 20190325, end: 20190409
  21. ADOPORT [Suspect]
     Active Substance: TACROLIMUS
     Dosage: 7 MG, UNK
     Route: 048
     Dates: start: 20190406, end: 20190409
  22. MYFORTIC [Suspect]
     Active Substance: MYCOPHENOLATE SODIUM
     Dosage: 1080 MG, UNK
     Route: 065
     Dates: start: 20190407
  23. BACTRIM [Concomitant]
     Active Substance: SULFAMETHOXAZOLE\TRIMETHOPRIM
     Dosage: UNK
     Route: 065
     Dates: start: 20190328
  24. ADOPORT [Suspect]
     Active Substance: TACROLIMUS
     Dosage: 3 MG, UNK
     Route: 048
     Dates: start: 20190425, end: 20190504
  25. ADOPORT [Suspect]
     Active Substance: TACROLIMUS
     Dosage: 8 MG, UNK
     Route: 048
     Dates: start: 20190328, end: 20190330
  26. MYFORTIC [Suspect]
     Active Substance: MYCOPHENOLATE SODIUM
     Indication: PROPHYLAXIS AGAINST TRANSPLANT REJECTION
     Dosage: 1440 MG, UNK
     Route: 065
     Dates: start: 20190321, end: 20190406
  27. ADOPORT [Suspect]
     Active Substance: TACROLIMUS
     Dosage: 9 MG, UNK
     Route: 048
     Dates: start: 20190327, end: 20190328
  28. CORTANCYL [Concomitant]
     Active Substance: PREDNISONE
     Dosage: UNK
     Route: 065
     Dates: start: 20190323
  29. LANSOPRAZOLE. [Concomitant]
     Active Substance: LANSOPRAZOLE
     Dosage: UNK
     Route: 065
     Dates: start: 20190322
  30. VALGANCICLOVIR. [Concomitant]
     Active Substance: VALGANCICLOVIR
     Dosage: UNK
     Route: 065
     Dates: start: 20190322
  31. NOVORAPID [Concomitant]
     Active Substance: INSULIN ASPART
     Dosage: UNK
     Route: 065
     Dates: start: 20190322, end: 20190424
  32. SOLU-MEDROL [Suspect]
     Active Substance: METHYLPREDNISOLONE SODIUM SUCCINATE
     Dosage: 120 MG, UNK
     Route: 065
     Dates: start: 20190322, end: 20190322
  33. ADOPORT [Suspect]
     Active Substance: TACROLIMUS
     Indication: RENAL TRANSPLANT
     Dosage: 9.5 MG, UNK
     Route: 048
     Dates: start: 20190401, end: 20190402
  34. NEFOPAM [Concomitant]
     Active Substance: NEFOPAM
     Dosage: UNK
     Route: 065
     Dates: start: 20190327, end: 20190407

REACTIONS (10)
  - Thrombocytopenia [Recovered/Resolved]
  - Atrial fibrillation [Not Recovered/Not Resolved]
  - Chest pain [Recovered/Resolved]
  - Escherichia urinary tract infection [Not Recovered/Not Resolved]
  - Localised oedema [Recovered/Resolved]
  - Oedema peripheral [Recovering/Resolving]
  - Abdominal pain [Recovered/Resolved]
  - Hyperglycaemia [Recovering/Resolving]
  - Metabolic acidosis [Not Recovered/Not Resolved]
  - Diarrhoea [Recovered/Resolved]

NARRATIVE: CASE EVENT DATE: 20190321
